FAERS Safety Report 23852324 (Version 2)
Quarter: 2024Q3

REPORT INFORMATION
  Report Type: Spontaneous
  Country: GB (occurrence: GB)
  Receive Date: 20240514
  Receipt Date: 20240813
  Transmission Date: 20241017
  Serious: Yes (Hospitalization, Other)
  Sender: MYLAN
  Company Number: GB-MYLANLABS-2023M1104842

PATIENT
  Age: 25 Year
  Sex: Female

DRUGS (15)
  1. CLOZARIL [Suspect]
     Active Substance: CLOZAPINE
     Indication: Personality disorder
     Dosage: UNK
     Route: 048
     Dates: start: 20210519
  2. CLOZARIL [Suspect]
     Active Substance: CLOZAPINE
     Indication: Post-traumatic stress disorder
     Dosage: 25 MILLIGRAM, QID (4 X 25 MG)
     Route: 065
  3. CLOZARIL [Suspect]
     Active Substance: CLOZAPINE
     Dosage: 100 MILLIGRAM, BID (2 X 100MG)
     Route: 065
  4. CLONAZEPAM [Concomitant]
     Active Substance: CLONAZEPAM
     Indication: Mood swings
     Dosage: 500 MICROGRAM, QID (4 X 500MCG)
     Route: 065
  5. PROCYCLIDINE [Concomitant]
     Active Substance: PROCYCLIDINE
     Indication: Prophylaxis
     Dosage: 5 MILLIGRAM, QD (1X 5MG)
     Route: 065
  6. SERTRALINE [Concomitant]
     Active Substance: SERTRALINE HYDROCHLORIDE
     Indication: Depression
     Dosage: 100 MILLIGRAM, QD (1 X 100MG)
     Route: 065
  7. LANSOPRAZOLE [Concomitant]
     Active Substance: LANSOPRAZOLE
     Indication: Gastrooesophageal reflux disease
     Dosage: 30 MILLIGRAM, QD (1 X 30MG)
     Route: 065
  8. ONDANSETRON [Concomitant]
     Active Substance: ONDANSETRON
     Indication: Illness
     Dosage: 2 MILLIGRAM (2MG)
     Route: 065
  9. ZOLPIDEM [Concomitant]
     Active Substance: ZOLPIDEM TARTRATE
     Indication: Insomnia
     Dosage: 7.5 MILLIGRAM, QD (1 TABLET EVERY OTHER NIGHT)
     Route: 065
  10. ZOPICLONE [Concomitant]
     Active Substance: ZOPICLONE
     Indication: Insomnia
     Dosage: 10 MILLIGRAM, QD (1 TABLET EVERY OTHER NIGHT)
     Route: 065
  11. CODEINE PHOSPHATE [Concomitant]
     Active Substance: CODEINE PHOSPHATE
     Indication: Pain
     Dosage: UNK (1 OR TWO TABLETS)
     Route: 065
  12. ACETAMINOPHEN [Concomitant]
     Active Substance: ACETAMINOPHEN
     Indication: Pain
     Dosage: UNK (1 TO 2 TABLETS UP TO 4 X DAILY AS REQ MAX 8 IN 24 HOURS)
     Route: 065
  13. PROMETHAZINE HYDROCHLORIDE [Concomitant]
     Active Substance: PROMETHAZINE HYDROCHLORIDE
     Indication: Anxiety
     Dosage: UNK (1 OR 2 TABLETS)
     Route: 065
  14. NEFOPAM HYDROCHLORIDE [Concomitant]
     Active Substance: NEFOPAM HYDROCHLORIDE
     Indication: Myalgia
     Dosage: UNK (2 TABLETS, MAX 3 TIMES DAILY IF REQUIRED)
     Route: 065
  15. ONDANSETRON [Concomitant]
     Active Substance: ONDANSETRON
     Indication: Illness
     Dosage: 1 DOSAGE FORM, QD (1 TABLET DAILY (ONLY IF REQUIRED AS ALREADY TAKING 2MG AS REGULAR MED)
     Route: 065

REACTIONS (4)
  - Hospitalisation [Unknown]
  - Toothache [Recovered/Resolved]
  - Differential white blood cell count abnormal [Unknown]
  - Off label use [Unknown]

NARRATIVE: CASE EVENT DATE: 20231003
